FAERS Safety Report 8825470 (Version 2)
Quarter: 2012Q4

REPORT INFORMATION
  Report Type: 
  Country: US (occurrence: US)
  Receive Date: 20121004
  Receipt Date: 20121005
  Transmission Date: 20130627
  Serious: Yes (Death, Hospitalization)
  Sender: FDA-Public Use
  Company Number: US-BAXTER-2012BAX018535

PATIENT
  Sex: Male
  Weight: 75 kg

DRUGS (2)
  1. GAMMAGARD LIQUID [Suspect]
     Indication: MULTIPLE MYELOMA
     Dosage: UNKNOWN
     Route: 042
     Dates: start: 2007, end: 2009
  2. THALIDOMIDE [Suspect]
     Indication: MULTIPLE MYELOMA

REACTIONS (1)
  - Cerebral haemorrhage [Fatal]
